FAERS Safety Report 7683756-4 (Version None)
Quarter: 2011Q3

REPORT INFORMATION
  Report Type: 
  Country: None (occurrence: None)
  Receive Date: 20110815
  Receipt Date: 20110812
  Transmission Date: 20111222
  Serious: Yes (Death)
  Sender: FDA-Public Use
  Company Number: IE-PFIZER INC-2011185846

PATIENT
  Age: 44 Year
  Sex: Male

DRUGS (2)
  1. VARENICLINE TARTRATE [Suspect]
     Indication: SMOKING CESSATION THERAPY
     Dosage: 0.5 MG, UNK
  2. INSULIN [Suspect]
     Indication: DIABETES MELLITUS
     Dosage: UNK

REACTIONS (2)
  - ACCIDENTAL OVERDOSE [None]
  - HYPOXIC-ISCHAEMIC ENCEPHALOPATHY [None]
